FAERS Safety Report 9454871 (Version 1)
Quarter: 2013Q3

REPORT INFORMATION
  Report Type: Report from Study
  Country: US (occurrence: US)
  Receive Date: 20130813
  Receipt Date: 20130813
  Transmission Date: 20140515
  Serious: Yes (Death)
  Sender: FDA-Public Use
  Company Number: US-ROCHE-1260985

PATIENT
  Age: 51 Year
  Sex: Female

DRUGS (2)
  1. ZELBORAF [Suspect]
     Indication: MALIGNANT MELANOMA
     Route: 048
     Dates: start: 20130515
  2. ZELBORAF [Suspect]
     Indication: PANCREATITIS

REACTIONS (1)
  - Death [Fatal]
